FAERS Safety Report 19815041 (Version 1)
Quarter: 2021Q3

REPORT INFORMATION
  Report Type: Spontaneous
  Country: US (occurrence: US)
  Receive Date: 20210910
  Receipt Date: 20210910
  Transmission Date: 20211014
  Serious: Yes (Death)
  Sender: FDA-Public Use
  Company Number: US-PFIZER INC-2021006436

PATIENT
  Age: 73 Year
  Sex: Male

DRUGS (1)
  1. SUTENT [Suspect]
     Active Substance: SUNITINIB MALATE
     Indication: LUNG CANCER METASTATIC
     Dosage: 37.5 MG, CYCLIC (DAILY 7 DAY ON THEN 7 DAYS OFF)

REACTIONS (2)
  - Off label use [Unknown]
  - Death [Fatal]
